FAERS Safety Report 6243991-9 (Version None)
Quarter: 2009Q2

REPORT INFORMATION
  Report Type: 
  Country: None (occurrence: None)
  Receive Date: 20090623
  Receipt Date: 20090611
  Transmission Date: 20091009
  Serious: Yes (Other)
  Sender: FDA-Public Use
  Company Number: 2007-02961

PATIENT
  Age: 57 Year
  Sex: Male
  Weight: 67 kg

DRUGS (3)
  1. VELCADE [Suspect]
     Indication: MULTIPLE MYELOMA
     Dosage: 2.30 MG, INTRAVENOUS
     Route: 042
     Dates: start: 20070716, end: 20070806
  2. THALIDOMIDE [Suspect]
     Indication: MULTIPLE MYELOMA
     Dosage: 100.00 MG, ORAL
     Route: 048
     Dates: start: 20070716, end: 20070806
  3. DEXAMETHASONE TAB [Suspect]
     Indication: MULTIPLE MYELOMA
     Dosage: 40.00 MG, INTRAVENOUS
     Route: 042
     Dates: start: 20070716, end: 20070806

REACTIONS (3)
  - BLOOD CREATININE INCREASED [None]
  - HAEMODIALYSIS [None]
  - HYPERKALAEMIA [None]
